FAERS Safety Report 4282147-6 (Version None)
Quarter: 2004Q1

REPORT INFORMATION
  Report Type: 
  Country: None (occurrence: None)
  Receive Date: 20040107
  Receipt Date: 20031016
  Transmission Date: 20041129
  Serious: Yes (Other)
  Sender: FDA-Public Use
  Company Number: 232464

PATIENT
  Age: 22 Year
  Sex: Male
  Weight: 72.6 kg

DRUGS (1)
  1. NOVOLOG [Suspect]
     Indication: DIABETES MELLITUS
     Dosage: SUBCUTANEOUS
     Route: 058
     Dates: start: 20021101

REACTIONS (3)
  - BLOOD GLUCOSE FLUCTUATION [None]
  - DIABETIC KETOACIDOSIS [None]
  - WEIGHT INCREASED [None]
